FAERS Safety Report 7491372-2 (Version None)
Quarter: 2011Q2

REPORT INFORMATION
  Report Type: 
  Country: None (occurrence: None)
  Receive Date: 20110519
  Receipt Date: 20110505
  Transmission Date: 20111010
  Serious: Yes (Other)
  Sender: FDA-Public Use
  Company Number: PHHY2011US39348

PATIENT
  Sex: Female

DRUGS (11)
  1. RECLAST [Suspect]
     Dosage: 5 MG/100 ML
     Route: 042
     Dates: start: 20110415
  2. LOPRESSOR [Concomitant]
     Dosage: 25 MG
  3. ASPIRIN [Concomitant]
  4. SYNTHROID [Concomitant]
     Dosage: 0.075 MG
  5. COUMADIN [Concomitant]
     Dosage: 5 MG
  6. ZESTRIL [Concomitant]
     Dosage: 20 MG
  7. CALCIUM CARBONATE [Concomitant]
  8. LIPITOR [Concomitant]
     Dosage: 10 MG
  9. FISH OIL [Concomitant]
  10. HYDROCHLOROTHIAZIDE [Concomitant]
     Dosage: 25 MG, UNK
  11. COENZYME Q10 [Concomitant]

REACTIONS (4)
  - CARDIAC VALVE DISEASE [None]
  - BLOOD PRESSURE DECREASED [None]
  - NAUSEA [None]
  - MALAISE [None]
